FAERS Safety Report 5349689-3 (Version None)
Quarter: 2007Q2

REPORT INFORMATION
  Report Type: 
  Country: None (occurrence: None)
  Receive Date: 20070607
  Receipt Date: 20070529
  Transmission Date: 20071010
  Serious: Yes (Hospitalization)
  Sender: FDA-Public Use
  Company Number: US-ELI_LILLY_AND_COMPANY-US200705007697

PATIENT
  Sex: Female

DRUGS (2)
  1. ZYPREXA [Suspect]
  2. CLOZARIL [Concomitant]

REACTIONS (3)
  - CELLULITIS [None]
  - OEDEMA PERIPHERAL [None]
  - RASH GENERALISED [None]
